FAERS Safety Report 6472338-8 (Version None)
Quarter: 2009Q4

REPORT INFORMATION
  Report Type: 
  Country: None (occurrence: None)
  Receive Date: 20091201
  Receipt Date: 20091120
  Transmission Date: 20100525
  Serious: Yes (Hospitalization)
  Sender: FDA-Public Use
  Company Number: 2009-04383

PATIENT
  Age: 30 Year
  Sex: Male
  Weight: 108.6 kg

DRUGS (2)
  1. VELCADE [Suspect]
     Indication: MULTIPLE MYELOMA
     Dosage: 1.3 MG/M2, INTRAVENOUS
     Route: 042
  2. TIPIFARNIB (TIPIFARNIB) ORAL DRUG UNSPECIFIED FORM [Suspect]
     Indication: MULTIPLE MYELOMA
     Dosage: 300 MG
     Dates: start: 20091013, end: 20091020

REACTIONS (6)
  - DRUG DOSE OMISSION [None]
  - GAIT DISTURBANCE [None]
  - HAEMATOMA [None]
  - PROCEDURAL SITE REACTION [None]
  - SPINAL CORD COMPRESSION [None]
  - WOUND DEHISCENCE [None]
